FAERS Safety Report 15763268 (Version 2)
Quarter: 2019Q1

REPORT INFORMATION
  Report Type: Spontaneous
  Country: US (occurrence: US)
  Receive Date: 20181227
  Receipt Date: 20190108
  Transmission Date: 20190417
  Serious: Yes (Other)
  Sender: FDA-Public Use
  Company Number: US-CIPLA LTD.-2018US23907

PATIENT

DRUGS (3)
  1. GABAPENTIN. [Suspect]
     Active Substance: GABAPENTIN
     Dosage: 2 DF, 2 CAPSULES OF 100 MG A DAY AT NIGHT
     Route: 048
     Dates: start: 20181210
  2. GABAPENTIN. [Suspect]
     Active Substance: GABAPENTIN
     Indication: BACK PAIN
     Dosage: 100 MG, A DAY AT NIGHT
     Route: 048
     Dates: start: 20181207, end: 20181209
  3. HYDROCODONE BITARTRATE AND ACETAMINOPHEN [Concomitant]
     Active Substance: ACETAMINOPHEN\HYDROCODONE BITARTRATE
     Indication: PAIN
     Dosage: 10 MG-325 MG/4 TABLETS A DAY (4 DF)
     Route: 065
     Dates: start: 2014

REACTIONS (3)
  - Off label use [Unknown]
  - Product dose omission [Unknown]
  - Drug ineffective for unapproved indication [Unknown]

NARRATIVE: CASE EVENT DATE: 20181216
